FAERS Safety Report 16809292 (Version 4)
Quarter: 2020Q3

REPORT INFORMATION
  Report Type: Spontaneous
  Country: US (occurrence: US)
  Receive Date: 20190916
  Receipt Date: 20200810
  Transmission Date: 20201102
  Serious: No
  Sender: FDA-Public Use
  Company Number: US-HTU-2019US019119

PATIENT
  Sex: Male

DRUGS (4)
  1. ATORVASTATIN CALCIUM. [Concomitant]
     Active Substance: ATORVASTATIN CALCIUM
  2. VALCHLOR [Suspect]
     Active Substance: MECHLORETHAMINE
     Indication: CUTANEOUS T-CELL LYMPHOMA
     Dosage: UNK, UNKNOWN
     Route: 061
     Dates: start: 20190516
  3. VALCHLOR [Suspect]
     Active Substance: MECHLORETHAMINE
     Dosage: UNKNOWN, 5/WEEK
     Route: 061
  4. LISINOPRIL. [Concomitant]
     Active Substance: LISINOPRIL

REACTIONS (11)
  - Condition aggravated [Unknown]
  - Application site erythema [Recovering/Resolving]
  - Rash macular [Unknown]
  - Drug ineffective [Unknown]
  - Gait disturbance [Unknown]
  - Pain [Unknown]
  - Application site pruritus [Recovered/Resolved]
  - Off label use [Unknown]
  - Application site discolouration [Recovering/Resolving]
  - Skin haemorrhage [Unknown]
  - Skin irritation [Unknown]
